FAERS Safety Report 20950371 (Version 5)
Quarter: 2024Q2

REPORT INFORMATION
  Report Type: Spontaneous
  Country: CA (occurrence: None)
  Receive Date: 20220613
  Receipt Date: 20240612
  Transmission Date: 20240715
  Serious: Yes (Hospitalization)
  Sender: FDA-Public Use
  Company Number: CA-ROCHE-3113571

PATIENT
  Age: 50 Year
  Sex: Male
  Weight: 70 kg

DRUGS (12)
  1. ACTEMRA [Suspect]
     Active Substance: TOCILIZUMAB
     Indication: Rheumatoid arthritis
     Route: 042
  2. RITUXIMAB [Suspect]
     Active Substance: RITUXIMAB
     Indication: Rheumatoid arthritis
     Route: 041
  3. CELEBREX [Concomitant]
     Active Substance: CELECOXIB
     Route: 065
  4. CALCIUM [Concomitant]
     Active Substance: CALCIUM
  5. ACETAMINOPHEN [Concomitant]
     Active Substance: ACETAMINOPHEN
     Route: 048
  6. METHYLPREDNISOLONE SODIUM SUCCINATE [Concomitant]
     Active Substance: METHYLPREDNISOLONE SODIUM SUCCINATE
     Route: 042
  7. FOLIC ACID [Concomitant]
     Active Substance: FOLIC ACID
  8. PREDNISONE [Concomitant]
     Active Substance: PREDNISONE
  9. METHOTREXATE [Concomitant]
     Active Substance: METHOTREXATE
     Route: 048
  10. HYDROXYCHLOROQUINE SULFATE [Concomitant]
     Active Substance: HYDROXYCHLOROQUINE SULFATE
  11. BENADRYL [Concomitant]
     Active Substance: DIPHENHYDRAMINE HYDROCHLORIDE
     Route: 048
  12. OXYCODONE HYDROCHLORIDE [Concomitant]
     Active Substance: OXYCODONE HYDROCHLORIDE
     Route: 048

REACTIONS (33)
  - Synovitis [Unknown]
  - Hand deformity [Unknown]
  - Musculoskeletal stiffness [Unknown]
  - Diverticulitis [Unknown]
  - Cartilage operation [Unknown]
  - Arthritis [Unknown]
  - Weight increased [Unknown]
  - Spinal osteoarthritis [Unknown]
  - Joint range of motion decreased [Unknown]
  - Pain [Unknown]
  - Colitis psychogenic [Unknown]
  - Abdominal pain lower [Unknown]
  - Therapeutic product effect decreased [Unknown]
  - Joint ankylosis [Unknown]
  - C-reactive protein increased [Unknown]
  - Dyspnoea exertional [Unknown]
  - Arthralgia [Unknown]
  - Dyspnoea at rest [Unknown]
  - Arthropathy [Unknown]
  - Degenerative bone disease [Unknown]
  - Hyperaemia [Unknown]
  - Intervertebral disc degeneration [Unknown]
  - Intervertebral disc space narrowing [Unknown]
  - Joint destruction [Unknown]
  - Intervertebral disc protrusion [Unknown]
  - Joint space narrowing [Unknown]
  - Lordosis [Unknown]
  - Lumbar spinal stenosis [Unknown]
  - Spinal disorder [Unknown]
  - Tenosynovitis [Unknown]
  - White matter lesion [Unknown]
  - Bone marrow oedema [Unknown]
  - Drug ineffective [Unknown]
